FAERS Safety Report 14078913 (Version 3)
Quarter: 2018Q1

REPORT INFORMATION
  Report Type: Spontaneous
  Country: JP (occurrence: JP)
  Receive Date: 20171012
  Receipt Date: 20180306
  Transmission Date: 20180508
  Serious: Yes (Other)
  Sender: FDA-Public Use
  Company Number: PHJP2017JP030458

PATIENT
  Age: 74 Year
  Sex: Male

DRUGS (4)
  1. HYALEIN [Concomitant]
     Active Substance: HYALURONATE SODIUM
     Indication: DRY EYE
     Dosage: 1 GTT, TID
     Route: 047
     Dates: start: 20171108
  2. GATIFLO [Concomitant]
     Active Substance: GATIFLOXACIN
     Indication: POSTOPERATIVE CARE
     Dosage: 1 GTT, TID
     Route: 047
     Dates: start: 20170830, end: 20171004
  3. RINDERON V [Concomitant]
     Active Substance: BETAMETHASONE VALERATE
     Indication: POSTOPERATIVE CARE
     Dosage: 1 GTT, 6QD
     Route: 047
     Dates: start: 20170830, end: 20170922
  4. NEVANAC [Suspect]
     Active Substance: NEPAFENAC
     Indication: POSTOPERATIVE CARE
     Dosage: 1 GTT, TID
     Route: 047
     Dates: start: 20170830, end: 20170922

REACTIONS (6)
  - Dry eye [Recovering/Resolving]
  - Ocular hyperaemia [Recovering/Resolving]
  - Vision blurred [Unknown]
  - Abnormal sensation in eye [Unknown]
  - Scleritis [Recovering/Resolving]
  - Conjunctival oedema [Unknown]

NARRATIVE: CASE EVENT DATE: 20170831
